FAERS Safety Report 11481793 (Version 1)
Quarter: 2015Q3

REPORT INFORMATION
  Report Type: Other
  Country: AR (occurrence: AR)
  Receive Date: 20150909
  Receipt Date: 20150909
  Transmission Date: 20151125
  Serious: Yes (Other)
  Sender: FDA-Public Use
  Company Number: AR-COR_00379_2015

PATIENT
  Age: 29 Year
  Sex: Female

DRUGS (6)
  1. METHOTREXATE [Suspect]
     Active Substance: METHOTREXATE
     Indication: CHORIOCARCINOMA
     Dosage: DAY 1, 100 MG/M2
     Route: 040
  2. FOLINIC ACID [Suspect]
     Active Substance: LEUCOVORIN
     Indication: CHORIOCARCINOMA
     Dosage: DAY 2, 15 MG INTRAMUSCULAR OR PER OS EVERY 12 H FOR 4 DOSES BEGINNING 24 H AFTER START OF MTX
  3. METHOTREXATE [Suspect]
     Active Substance: METHOTREXATE
     Dosage: DAY 1, 200 MG/M2 IN 1,000 ML OVER 12 H
  4. ETOPOSIDE. [Suspect]
     Active Substance: ETOPOSIDE
     Indication: CHORIOCARCINOMA
     Dosage: DAYS 1, 2 AND 8, 100 MG/M2 OVER 30 MIN
     Route: 042
  5. PLATINUM [Suspect]
     Active Substance: PLATINUM
     Indication: CHORIOCARCINOMA
     Dosage: DAY 8, 100 MG/M2 12 H
  6. ACTINOMYCIN D [Suspect]
     Active Substance: DACTINOMYCIN
     Indication: CHORIOCARCINOMA
     Dosage: DAYS 1 AND 2, 0.5 MG
     Route: 040

REACTIONS (1)
  - Nephropathy toxic [Unknown]
